FAERS Safety Report 5031491-3 (Version None)
Quarter: 2006Q2

REPORT INFORMATION
  Report Type: 
  Country: None (occurrence: None)
  Receive Date: 20060616
  Receipt Date: 20060601
  Transmission Date: 20061013
  Serious: Yes (Death)
  Sender: FDA-Public Use
  Company Number: 2006S1005082

PATIENT
  Age: 55 Year
  Sex: Female

DRUGS (7)
  1. CLOZAPINE [Suspect]
     Dosage: 50 MG;QAM; ORAL
     Route: 048
     Dates: start: 20060111
  2. CLOZAPINE [Suspect]
     Dosage: SEE IMAGE
     Route: 048
     Dates: start: 20060111
  3. CLOZAPINE [Suspect]
     Dosage: SEE IMAGE
     Route: 048
     Dates: start: 20060111
  4. FERROUS GLUCONATE [Concomitant]
  5. LANSOPRAZOLE [Concomitant]
  6. LORAZEPAM [Concomitant]
  7. BENZTROPINE MESYLATE [Concomitant]

REACTIONS (1)
  - DEATH [None]
